FAERS Safety Report 6944367-9 (Version None)
Quarter: 2010Q3

REPORT INFORMATION
  Report Type: 
  Country: None (occurrence: None)
  Receive Date: 20100827
  Receipt Date: 20100816
  Transmission Date: 20110219
  Serious: Yes (Other)
  Sender: FDA-Public Use
  Company Number: CA-SHIRE-SPV1-2010-00865

PATIENT

DRUGS (2)
  1. VYVANSE [Suspect]
     Indication: ATTENTION DEFICIT/HYPERACTIVITY DISORDER
     Dosage: 30 MG, UNKNOWN
     Route: 065
     Dates: start: 20100404, end: 20100426
  2. VYVANSE [Suspect]
     Dosage: 30 MG, UNKNOWN (1/2 CAPSULE 30MG)
     Route: 065
     Dates: end: 20100426

REACTIONS (5)
  - AFFECT LABILITY [None]
  - DEPRESSION [None]
  - DRUG PRESCRIBING ERROR [None]
  - SOCIAL AVOIDANT BEHAVIOUR [None]
  - SUICIDAL IDEATION [None]
